FAERS Safety Report 15155792 (Version 1)
Quarter: 2018Q3

REPORT INFORMATION
  Report Type: Spontaneous
  Country: AT (occurrence: AT)
  Receive Date: 20180717
  Receipt Date: 20180717
  Transmission Date: 20181010
  Serious: Yes (Hospitalization)
  Sender: FDA-Public Use
  Company Number: AT-US WORLDMEDS, LLC-STA_00017834

PATIENT
  Age: 73 Year
  Sex: Female
  Weight: 46 kg

DRUGS (10)
  1. NEUPRO TTS 6MG/24H [Concomitant]
  2. MOVICOL BTL. [Concomitant]
  3. ZOLDEM 10MG [Concomitant]
  4. SEROQUEL 50 MG XR [Concomitant]
  5. SERTRALINE 50MG [Concomitant]
     Active Substance: SERTRALINE HYDROCHLORIDE
  6. MADOPAR 200MG [Concomitant]
     Dosage: +  1X1/2 TBL/D
  7. PRAXITEN 15 [Concomitant]
     Active Substance: OXAZEPAM
  8. APOMORPHINE HYDROCHLORIDE [Suspect]
     Active Substance: APOMORPHINE HYDROCHLORIDE
     Indication: PARKINSON^S DISEASE
     Route: 058
     Dates: start: 20150113, end: 20150310
  9. EXELON 9,5MG/24H [Concomitant]
  10. APO?GO PEN 10MG/ML [Suspect]
     Active Substance: APOMORPHINE HYDROCHLORIDE
     Indication: PARKINSON^S DISEASE
     Route: 058
     Dates: start: 20150113, end: 20150310

REACTIONS (4)
  - Aggression [Unknown]
  - Injection site discolouration [Unknown]
  - Intentional medical device removal by patient [None]
  - Sleep terror [Unknown]

NARRATIVE: CASE EVENT DATE: 20150130
